FAERS Safety Report 16909754 (Version 2)
Quarter: 2020Q3

REPORT INFORMATION
  Report Type: Spontaneous
  Country: US (occurrence: US)
  Receive Date: 20191011
  Receipt Date: 20200815
  Transmission Date: 20201102
  Serious: No
  Sender: FDA-Public Use
  Company Number: US-ACTELION-A-US2019-195797

PATIENT
  Age: 82 Year
  Sex: Female

DRUGS (1)
  1. OPSUMIT [Suspect]
     Active Substance: MACITENTAN
     Indication: PULMONARY ARTERIAL HYPERTENSION
     Dosage: 10 MG
     Route: 048
     Dates: start: 20170915

REACTIONS (4)
  - Pain in jaw [Unknown]
  - Headache [Unknown]
  - Therapy non-responder [Unknown]
  - Diarrhoea [Unknown]

NARRATIVE: CASE EVENT DATE: 20191001
